FAERS Safety Report 7332450-8 (Version None)
Quarter: 2011Q1

REPORT INFORMATION
  Report Type: 
  Country: None (occurrence: None)
  Receive Date: 20110304
  Receipt Date: 20110301
  Transmission Date: 20110831
  Serious: Yes (Hospitalization, Other)
  Sender: FDA-Public Use
  Company Number: US-PFIZER INC-2011045264

PATIENT
  Sex: Female
  Weight: 115 kg

DRUGS (13)
  1. ALDACTONE [Suspect]
     Dosage: UNK
     Route: 048
  2. LASIX [Concomitant]
     Dosage: 20 MG, 2X/DAY
     Route: 048
  3. COUMADIN [Concomitant]
     Dosage: 7.5 MG, 4X/WEEK
  4. PULMICORT [Concomitant]
     Dosage: 25 MG, 2X/DAY
  5. LISINOPRIL [Concomitant]
     Dosage: 10 MG, 1X/DAY
  6. COUMADIN [Concomitant]
     Indication: THROMBOSIS
     Dosage: 10 MG, 3X/WEEK
     Route: 048
  7. GLUCOTROL [Concomitant]
     Dosage: 10 MG, 2X/DAY
     Route: 048
  8. IRON [Concomitant]
     Dosage: 325 MG, 1X/DAY
     Route: 048
  9. COLACE [Concomitant]
     Dosage: UNK
  10. METFORMIN [Concomitant]
     Dosage: 1000 MG, 2X/DAY
  11. DIGOXIN [Concomitant]
     Dosage: 0.25 MG, 1X/DAY
  12. CARDIZEM [Concomitant]
     Dosage: 180 MG, 2X/DAY
     Route: 048
  13. LIPITOR [Suspect]
     Indication: DIABETES MELLITUS
     Dosage: 20 MG, 1X/DAY
     Route: 048

REACTIONS (4)
  - THROMBOSIS [None]
  - WRONG TECHNIQUE IN DRUG USAGE PROCESS [None]
  - DYSPNOEA [None]
  - ARRHYTHMIA [None]
